FAERS Safety Report 6653867-0 (Version None)
Quarter: 2010Q1

REPORT INFORMATION
  Report Type: 
  Country: None (occurrence: None)
  Receive Date: 20100326
  Receipt Date: 20100319
  Transmission Date: 20100710
  Serious: Yes (Hospitalization)
  Sender: FDA-Public Use
  Company Number: JP-SANOFI-AVENTIS-F01200900303

PATIENT
  Age: 61 Year
  Sex: Male
  Weight: 96.5 kg

DRUGS (11)
  1. OXALIPLATIN [Suspect]
     Indication: COLON CANCER
     Route: 042
     Dates: start: 20090224, end: 20090224
  2. OXALIPLATIN [Suspect]
     Route: 042
     Dates: start: 20090310, end: 20090310
  3. TS-1 [Suspect]
     Indication: COLON CANCER
     Dosage: DOSE TEXT: 120 MG/DAY 7 CONSECUTIVE DAYS
     Route: 048
     Dates: start: 20090310
  4. CALCIUM FOLINATE [Suspect]
     Indication: COLON CANCER
     Dosage: DOSE TEXT: 50 MG/DAY  7 CONSECUTIVE DAYS
     Route: 048
     Dates: start: 20090310
  5. MAGNESIUM OXIDE [Concomitant]
     Route: 048
  6. GASMOTIN [Concomitant]
     Route: 048
  7. CALBLOCK [Concomitant]
     Route: 048
  8. TRICHLORMETHIAZIDE [Concomitant]
     Route: 048
  9. CANDESARTAN CILEXETIL [Concomitant]
     Route: 048
  10. TAMSULOSIN HYDROCHLORIDE [Concomitant]
     Route: 048
  11. NORVASC [Concomitant]
     Indication: HYPERTENSION
     Route: 048
     Dates: start: 20090318

REACTIONS (3)
  - HEPATIC FUNCTION ABNORMAL [None]
  - RENAL IMPAIRMENT [None]
  - URINARY RETENTION [None]
